FAERS Safety Report 16877615 (Version 1)
Quarter: 2019Q4

REPORT INFORMATION
  Report Type: Report from Study
  Country: JP (occurrence: JP)
  Receive Date: 20191002
  Receipt Date: 20191002
  Transmission Date: 20200122
  Serious: Yes (Hospitalization)
  Sender: FDA-Public Use
  Company Number: PHJP2017JP027527

PATIENT
  Age: 77 Year
  Sex: Male
  Weight: 57.4 kg

DRUGS (78)
  1. M_LCZ696_VALSARTAN [Suspect]
     Active Substance: SACUBITRIL\VALSARTAN
     Indication: CARDIAC FAILURE
     Dosage: 40 MG, BID
     Route: 048
     Dates: start: 20160322
  2. DIOVAN [Suspect]
     Active Substance: VALSARTAN
     Dosage: 160 MG, BID
     Route: 048
     Dates: start: 20170522
  3. DIOVAN [Suspect]
     Active Substance: VALSARTAN
     Dosage: 160 MG, BID
     Route: 048
     Dates: start: 20170925, end: 20171128
  4. PLACEBO [Suspect]
     Active Substance: UNSPECIFIED INGREDIENT
     Indication: CARDIAC FAILURE
     Dosage: UNK
     Route: 048
     Dates: start: 20160509
  5. CRESTOR [Concomitant]
     Active Substance: ROSUVASTATIN CALCIUM
     Indication: DYSLIPIDAEMIA
     Dosage: 2.5 MG, QD
     Route: 048
     Dates: start: 20150317
  6. ALDOMET [Concomitant]
     Active Substance: METHYLDOPA
     Indication: HYPERTENSION
     Dosage: 250 MG, BID
     Route: 048
     Dates: start: 20161108
  7. ALDOMET [Concomitant]
     Active Substance: METHYLDOPA
     Dosage: 250 MG, BID
     Route: 048
     Dates: start: 20171201
  8. THYRADIN-S [Concomitant]
     Active Substance: LEVOTHYROXINE
     Indication: HYPOTHYROIDISM
     Dosage: 50 UG, QD
     Route: 048
     Dates: start: 20170612
  9. VICTOZA [Concomitant]
     Active Substance: LIRAGLUTIDE
     Indication: TYPE 2 DIABETES MELLITUS
     Dosage: 0.6 MG, QD
     Route: 058
     Dates: start: 20170524, end: 20180611
  10. SAMSCA [Concomitant]
     Active Substance: TOLVAPTAN
     Indication: CARDIAC FAILURE
     Dosage: 3.75 MG, QD
     Route: 048
     Dates: start: 20170812
  11. SAMSCA [Concomitant]
     Active Substance: TOLVAPTAN
     Dosage: 7.5 MG, QD
     Route: 048
     Dates: start: 20170907
  12. NIFLEC [Concomitant]
     Active Substance: POLYETHYLENE GLYCOLS\POTASSIUM CHLORIDE\SODIUM BICARBONATE\SODIUM CHLORIDE\SODIUM SULFATE ANHYDROUS
     Indication: PRODUCT USED FOR UNKNOWN INDICATION
     Dosage: 1 DF, UNK
     Route: 065
     Dates: start: 20171002
  13. PICOSULFATE NA [Concomitant]
     Active Substance: SODIUM PICOSULFATE
     Indication: PRODUCT USED FOR UNKNOWN INDICATION
     Dosage: 20 ML,
     Route: 048
     Dates: start: 20171002
  14. ZINC. [Concomitant]
     Active Substance: ZINC
     Indication: HYPOZINCAEMIA
     Dosage: 25 MG, BID
     Route: 048
     Dates: start: 20180622
  15. AZOSEMIDE [Concomitant]
     Active Substance: AZOSEMIDE
     Indication: CARDIAC FAILURE
     Dosage: 15 MG, QD
     Route: 048
     Dates: start: 20170613
  16. FEBURIC [Concomitant]
     Active Substance: FEBUXOSTAT
     Indication: HYPERURICAEMIA
     Dosage: 10 MG, QD
     Route: 048
     Dates: start: 20150406, end: 20171004
  17. NAFTIFINE. [Concomitant]
     Active Substance: NAFTIFINE HYDROCHLORIDE
     Dosage: 40 MG, QD
     Route: 048
     Dates: start: 20180702
  18. KREMEZIN [Concomitant]
     Active Substance: ACTIVATED CHARCOAL
     Indication: DIABETIC NEPHROPATHY
     Dosage: 2 G, QD
     Route: 048
     Dates: start: 20160609
  19. TRESIBA [Concomitant]
     Active Substance: INSULIN DEGLUDEC
     Indication: TYPE 2 DIABETES MELLITUS
     Dosage: 2 IU, QD
     Route: 065
     Dates: start: 20170629
  20. EFIENT [Concomitant]
     Active Substance: PRASUGREL HYDROCHLORIDE
     Indication: ANGINA UNSTABLE
     Dosage: 3.75 MG, QD
     Route: 048
     Dates: start: 20170809
  21. SAMSCA [Concomitant]
     Active Substance: TOLVAPTAN
     Dosage: 15 MG, UNK
     Route: 048
     Dates: start: 20180613, end: 20180629
  22. SAMSCA [Concomitant]
     Active Substance: TOLVAPTAN
     Dosage: 7.5 MG, UNK
     Route: 048
     Dates: start: 20180630, end: 20180712
  23. DOMPERIDONE [Concomitant]
     Active Substance: DOMPERIDONE
     Indication: PROPHYLAXIS OF NAUSEA AND VOMITING
     Dosage: 5 MG, BID
     Route: 048
     Dates: start: 20170815, end: 20171002
  24. ARGAMATE [Concomitant]
     Active Substance: CALCIUM POLYSTYRENE SULFONATE
     Dosage: UNK
     Route: 065
     Dates: end: 20180621
  25. SODIUM FERRIC CITRATE [Concomitant]
     Active Substance: FERRIC SODIUM CITRATE
     Indication: NEPHROGENIC ANAEMIA
     Dosage: 100 MG, QD
     Route: 048
     Dates: start: 20170815
  26. CONIEL [Concomitant]
     Active Substance: BENIDIPINE HYDROCHLORIDE
     Indication: PRODUCT USED FOR UNKNOWN INDICATION
     Dosage: 4 MG, PRN
     Route: 048
     Dates: start: 20180613
  27. OYPALOMIN [Concomitant]
     Active Substance: IOPAMIDOL
     Indication: PRODUCT USED FOR UNKNOWN INDICATION
     Dosage: 100 ML, UNK
     Route: 065
     Dates: start: 20180711
  28. M_LCZ696_VALSARTAN [Suspect]
     Active Substance: SACUBITRIL\VALSARTAN
     Dosage: 80 MG, BID
     Route: 048
     Dates: start: 20160328
  29. PLACEBO [Suspect]
     Active Substance: UNSPECIFIED INGREDIENT
     Dosage: UNK
     Route: 048
     Dates: start: 20170522
  30. PLACEBO [Suspect]
     Active Substance: UNSPECIFIED INGREDIENT
     Dosage: UNK
     Route: 048
     Dates: start: 20171129
  31. FEBURIC [Concomitant]
     Active Substance: FEBUXOSTAT
     Dosage: 20 MG, QD
     Route: 048
     Dates: start: 20171005
  32. NEXIUM [Concomitant]
     Active Substance: ESOMEPRAZOLE MAGNESIUM
     Indication: GASTROOESOPHAGEAL REFLUX DISEASE
     Dosage: 20 MG, QD
     Route: 048
     Dates: start: 20170315
  33. NAFTIFINE. [Concomitant]
     Active Substance: NAFTIFINE HYDROCHLORIDE
     Indication: HYPERTENSION
     Dosage: 40 MG, BID
     Route: 048
     Dates: start: 20140929
  34. ALDOMET [Concomitant]
     Active Substance: METHYLDOPA
     Dosage: 125 MG, BID
     Route: 048
     Dates: start: 20171011, end: 20171217
  35. ALDOMET [Concomitant]
     Active Substance: METHYLDOPA
     Dosage: 250 MG, QD
     Route: 048
     Dates: start: 20180702
  36. DOXAZOSIN MESILATE [Concomitant]
     Active Substance: DOXAZOSIN MESYLATE
     Dosage: 2 MG, UNK
     Route: 048
     Dates: start: 20170928, end: 20171006
  37. DOXAZOSIN MESILATE [Concomitant]
     Active Substance: DOXAZOSIN MESYLATE
     Dosage: 2 MG, QD
     Route: 048
     Dates: start: 20171013, end: 20180710
  38. THYRADIN-S [Concomitant]
     Active Substance: LEVOTHYROXINE
     Dosage: 75 UG, QD
     Route: 048
     Dates: start: 20170926
  39. NOVORAPID [Concomitant]
     Active Substance: INSULIN ASPART
     Dosage: UNK
     Route: 058
     Dates: start: 20180524, end: 20180622
  40. TRESIBA [Concomitant]
     Active Substance: INSULIN DEGLUDEC
     Dosage: 3 IU, UNK
     Route: 065
     Dates: start: 20180617, end: 20180627
  41. MOHRUS [Concomitant]
     Active Substance: KETOPROFEN
     Indication: ROTATOR CUFF SYNDROME
     Dosage: 20 MG, QD
     Route: 062
     Dates: start: 20170810
  42. DIOVAN [Suspect]
     Active Substance: VALSARTAN
     Indication: CARDIAC FAILURE
     Dosage: 160 MG, BID
     Route: 048
     Dates: start: 20160509
  43. THYRADIN-S [Concomitant]
     Active Substance: LEVOTHYROXINE
     Dosage: 125 UG, UNK
     Route: 048
     Dates: start: 20180712
  44. TRESIBA [Concomitant]
     Active Substance: INSULIN DEGLUDEC
     Dosage: 3 IU, UNK
     Route: 065
     Dates: start: 20180612, end: 20180615
  45. ARGAMATE [Concomitant]
     Active Substance: CALCIUM POLYSTYRENE SULFONATE
     Indication: HYPERKALAEMIA
     Dosage: 25 MG, BID
     Route: 048
     Dates: start: 20170822, end: 20171002
  46. HUMULIN R [Concomitant]
     Active Substance: INSULIN HUMAN
     Indication: PRODUCT USED FOR UNKNOWN INDICATION
     Dosage: UNK
     Route: 065
     Dates: start: 20170926, end: 20170926
  47. TRULICITY [Concomitant]
     Active Substance: DULAGLUTIDE
     Dosage: 0.75 MG, QD
     Route: 058
     Dates: start: 20180709, end: 20180709
  48. NICARDIPINE [Concomitant]
     Active Substance: NICARDIPINE
     Indication: PRODUCT USED FOR UNKNOWN INDICATION
     Dosage: 2 MG, QD
     Route: 065
     Dates: start: 20180707
  49. PLETAAL [Concomitant]
     Active Substance: CILOSTAZOL
     Indication: PRODUCT USED FOR UNKNOWN INDICATION
     Dosage: 200 MG, UNK
     Route: 065
     Dates: start: 20180704, end: 20180712
  50. NAFTIFINE. [Concomitant]
     Active Substance: NAFTIFINE HYDROCHLORIDE
     Dosage: 40 MG, UNK
     Route: 048
     Dates: start: 20180710
  51. THYRADIN-S [Concomitant]
     Active Substance: LEVOTHYROXINE
     Dosage: 75 UG, QD
     Route: 048
     Dates: start: 20170808
  52. CALONAL [Concomitant]
     Active Substance: ACETAMINOPHEN
     Indication: PRODUCT USED FOR UNKNOWN INDICATION
     Dosage: UNK
     Route: 048
     Dates: start: 20170926, end: 20170926
  53. ROCEPHIN [Concomitant]
     Active Substance: CEFTRIAXONE SODIUM
     Indication: PRODUCT USED FOR UNKNOWN INDICATION
     Dosage: 1 G, UNK
     Route: 042
     Dates: start: 20170927, end: 20170927
  54. HIRUDOID [Concomitant]
     Active Substance: GLYCOSAMINOGLYCANS
     Indication: PROPHYLAXIS
     Dosage: UNK
     Route: 061
     Dates: start: 20171010
  55. TAKECAB [Concomitant]
     Active Substance: VONOPRAZAN FUMURATE
     Indication: GASTROOESOPHAGEAL REFLUX DISEASE
     Dosage: 20 MG, QD
     Route: 048
     Dates: start: 20170809
  56. MIRCERA [Concomitant]
     Active Substance: METHOXY POLYETHYLENE GLYCOL-EPOETIN BETA
     Indication: PRODUCT USED FOR UNKNOWN INDICATION
     Dosage: 150 UG/0.3ML, QD
     Route: 065
     Dates: start: 20180612
  57. LCZ696 [Suspect]
     Active Substance: SACUBITRIL\VALSARTAN
     Indication: CARDIAC FAILURE
     Dosage: 100 MG, BID
     Route: 048
     Dates: start: 20160411
  58. PLACEBO [Suspect]
     Active Substance: UNSPECIFIED INGREDIENT
     Dosage: UNK
     Route: 048
     Dates: start: 20170925, end: 20171128
  59. ALDOMET [Concomitant]
     Active Substance: METHYLDOPA
     Dosage: 500 MG, UNK
     Route: 048
     Dates: start: 20170930, end: 20171007
  60. ALDOMET [Concomitant]
     Active Substance: METHYLDOPA
     Dosage: 125 MG, BID
     Route: 048
     Dates: start: 20180706, end: 20180707
  61. THYRADIN-S [Concomitant]
     Active Substance: LEVOTHYROXINE
     Dosage: 50 UG, TID
     Route: 048
     Dates: start: 20180313
  62. BAYASPIRIN [Concomitant]
     Active Substance: ASPIRIN
     Indication: ANGINA UNSTABLE
     Dosage: 100 MG, QD
     Route: 048
     Dates: start: 20170809
  63. TRAMCET [Concomitant]
     Active Substance: ACETAMINOPHEN\TRAMADOL
     Indication: ROTATOR CUFF SYNDROME
     Dosage: UNK
     Route: 048
     Dates: start: 20170815, end: 20171002
  64. PRIMPERAN [Concomitant]
     Active Substance: METOCLOPRAMIDE HYDROCHLORIDE
     Indication: PRODUCT USED FOR UNKNOWN INDICATION
     Dosage: 10 MG, UNK
     Route: 048
     Dates: start: 20171002
  65. TRULICITY [Concomitant]
     Active Substance: DULAGLUTIDE
     Indication: PRODUCT USED FOR UNKNOWN INDICATION
     Dosage: 0.75 MG, QD
     Route: 058
     Dates: start: 20180625, end: 20180625
  66. NAFTIFINE. [Concomitant]
     Active Substance: NAFTIFINE HYDROCHLORIDE
     Dosage: 40 MG, BID
     Route: 048
     Dates: start: 20170926
  67. DOXAZOSIN MESILATE [Concomitant]
     Active Substance: DOXAZOSIN MESYLATE
     Indication: HYPERTENSION
     Dosage: 2 MG, QD
     Route: 048
     Dates: start: 20170612
  68. TRESIBA [Concomitant]
     Active Substance: INSULIN DEGLUDEC
     Dosage: 3 IU, UNK
     Route: 065
     Dates: start: 20180616, end: 20180616
  69. VENAPASTA [Concomitant]
     Indication: PROPHYLAXIS
     Dosage: UNK
     Route: 061
     Dates: start: 20170906
  70. NATRIX [Concomitant]
     Active Substance: INDAPAMIDE
     Indication: PRODUCT USED FOR UNKNOWN INDICATION
     Dosage: UNK
     Route: 048
     Dates: start: 20170930, end: 20171006
  71. TRULICITY [Concomitant]
     Active Substance: DULAGLUTIDE
     Dosage: 0.75 MG, QD
     Route: 058
     Dates: start: 20180702, end: 20180702
  72. DIOVAN [Suspect]
     Active Substance: VALSARTAN
     Dosage: 160 MG, BID
     Route: 048
     Dates: start: 20171129
  73. NOVORAPID [Concomitant]
     Active Substance: INSULIN ASPART
     Indication: TYPE 2 DIABETES MELLITUS
     Dosage: 10 IU, UNK
     Route: 058
     Dates: start: 20170629
  74. SENNOSIDE [Concomitant]
     Active Substance: SENNOSIDES
     Indication: PRODUCT USED FOR UNKNOWN INDICATION
     Dosage: UNK
     Route: 048
     Dates: start: 20170927
  75. AMITIZA [Concomitant]
     Active Substance: LUBIPROSTONE
     Indication: PRODUCT USED FOR UNKNOWN INDICATION
     Dosage: 1 DF, UNK
     Route: 048
     Dates: start: 20170929, end: 20171001
  76. MIRCERA [Concomitant]
     Active Substance: METHOXY POLYETHYLENE GLYCOL-EPOETIN BETA
     Dosage: 150 UG/0.3ML, UNK
     Route: 065
     Dates: start: 20180710
  77. CONIEL [Concomitant]
     Active Substance: BENIDIPINE HYDROCHLORIDE
     Dosage: 4 MG, QD
     Route: 048
     Dates: start: 20180713
  78. TRULICITY [Concomitant]
     Active Substance: DULAGLUTIDE
     Dosage: 0.75 MG, UNK
     Route: 058
     Dates: start: 20180716, end: 20180716

REACTIONS (3)
  - Renal failure [Recovering/Resolving]
  - Renal artery stenosis [Recovered/Resolved]
  - Hyperkalaemia [Recovered/Resolved]

NARRATIVE: CASE EVENT DATE: 20170814
